FAERS Safety Report 5049426-6 (Version None)
Quarter: 2006Q2

REPORT INFORMATION
  Report Type: 
  Country: None (occurrence: None)
  Receive Date: 20060613
  Receipt Date: 20060421
  Transmission Date: 20061013
  Serious: No
  Sender: FDA-Public Use
  Company Number: 2006-00948

PATIENT
  Age: 40 Year
  Sex: Male

DRUGS (2)
  1. VELCADE [Suspect]
     Indication: MULTIPLE MYELOMA
  2. REVLIMID [Suspect]
     Indication: MULTIPLE MYELOMA
     Dosage: 5.00 MG

REACTIONS (1)
  - TOOTH LOSS [None]
